FAERS Safety Report 4513134-8 (Version None)
Quarter: 2004Q4

REPORT INFORMATION
  Report Type: 
  Country: None (occurrence: None)
  Receive Date: 20041124
  Receipt Date: 20041115
  Transmission Date: 20050328
  Serious: No
  Sender: FDA-Public Use
  Company Number: HQWYE473615NOV04

PATIENT
  Sex: Female

DRUGS (1)
  1. EFFEXOR XR [Suspect]
     Dates: end: 20041001

REACTIONS (5)
  - ACTIVITIES OF DAILY LIVING IMPAIRED [None]
  - DEPRESSION [None]
  - DRUG WITHDRAWAL SYNDROME [None]
  - LOSS OF EMPLOYMENT [None]
  - SUICIDAL IDEATION [None]
